FAERS Safety Report 9586125 (Version 2)
Quarter: 2013Q4

REPORT INFORMATION
  Report Type: Spontaneous
  Country: CH (occurrence: None)
  Receive Date: 20131001
  Receipt Date: 20131202
  Transmission Date: 20140711
  Serious: Yes (Other)
  Sender: FDA-Public Use
  Company Number: 20130511

PATIENT
  Age: 39 Year
  Sex: Female
  Weight: 76 kg

DRUGS (4)
  1. VENOFER [Suspect]
     Indication: ANAEMIA OF CHRONIC DISEASE
     Dosage: INTO ARM OF
  2. AMLOC (AMLODIPINE BESILATE) [Concomitant]
  3. PREXIUM (PERINDOPRIL ERBUMINE) [Concomitant]
  4. PURESIS (FUROSEMIDE) [Concomitant]

REACTIONS (2)
  - Thrombosis [None]
  - Medical device complication [None]
